FAERS Safety Report 6421085-7 (Version None)
Quarter: 2009Q4

REPORT INFORMATION
  Report Type: 
  Country: None (occurrence: None)
  Receive Date: 20091030
  Receipt Date: 20091022
  Transmission Date: 20100525
  Serious: Yes (Hospitalization)
  Sender: FDA-Public Use
  Company Number: US-ASTRAZENECA-2009SE21850

PATIENT
  Age: 28 Year
  Sex: Female
  Weight: 99.8 kg

DRUGS (2)
  1. SEROQUEL [Suspect]
     Route: 048
  2. XANAX [Concomitant]

REACTIONS (5)
  - APNOEA [None]
  - INCOHERENT [None]
  - LOSS OF CONSCIOUSNESS [None]
  - OVERDOSE [None]
  - UNRESPONSIVE TO STIMULI [None]
